FAERS Safety Report 6008583-5 (Version None)
Quarter: 2008Q4

REPORT INFORMATION
  Report Type: 
  Country: None (occurrence: None)
  Receive Date: 20081217
  Receipt Date: 20081211
  Transmission Date: 20090506
  Serious: Yes (Other)
  Sender: FDA-Public Use
  Company Number: IE-B.I. PHARMACEUTICALS,INC./RIDGEFIELD-2008-UK-01869UK

PATIENT
  Sex: Female

DRUGS (5)
  1. PERSANTIN (00015/0052R) [Suspect]
     Indication: TRANSIENT ISCHAEMIC ATTACK
     Dosage: 400MG
     Route: 048
     Dates: start: 20081119, end: 20081121
  2. CRESTOR [Concomitant]
  3. ZOLPIDEM TARTRATE [Concomitant]
  4. NASACORT [Concomitant]
  5. NU-SEALS [Concomitant]

REACTIONS (4)
  - ASTHENIA [None]
  - MYALGIA [None]
  - NAUSEA [None]
  - TENDERNESS [None]
